FAERS Safety Report 17325260 (Version 2)
Quarter: 2020Q1

REPORT INFORMATION
  Report Type: Report from Study
  Country: BR (occurrence: BR)
  Receive Date: 20200127
  Receipt Date: 20200205
  Transmission Date: 20200409
  Serious: Yes (Hospitalization)
  Sender: FDA-Public Use
  Company Number: PHHY2018BR008959

PATIENT
  Age: 64 Year
  Sex: Male
  Weight: 90 kg

DRUGS (4)
  1. COSENTYX [Suspect]
     Active Substance: SECUKINUMAB
     Dosage: UNK
     Route: 065
     Dates: start: 201912
  2. COSENTYX [Suspect]
     Active Substance: SECUKINUMAB
     Indication: PSORIATIC ARTHROPATHY
     Dosage: 300 MG, QW
     Route: 058
     Dates: start: 20180414, end: 20180515
  3. COSENTYX [Suspect]
     Active Substance: SECUKINUMAB
     Dosage: UNK
     Route: 065
     Dates: start: 201911
  4. COSENTYX [Suspect]
     Active Substance: SECUKINUMAB
     Dosage: 300 MG, QMO
     Route: 058

REACTIONS (15)
  - Pain [Recovering/Resolving]
  - Skin fissures [Recovering/Resolving]
  - Stress [Recovered/Resolved]
  - Insomnia [Unknown]
  - Road traffic accident [Unknown]
  - Malaise [Recovering/Resolving]
  - Skin exfoliation [Not Recovered/Not Resolved]
  - Tendonitis [Unknown]
  - Drug ineffective [Not Recovered/Not Resolved]
  - Burning sensation [Recovering/Resolving]
  - Pruritus [Recovering/Resolving]
  - Dry skin [Recovering/Resolving]
  - Intestinal polyp [Unknown]
  - Bursitis [Unknown]
  - Overweight [Unknown]

NARRATIVE: CASE EVENT DATE: 20180821
